FAERS Safety Report 26167558 (Version 1)
Quarter: 2025Q4

REPORT INFORMATION
  Report Type: Report from Study
  Country: CA (occurrence: CA)
  Receive Date: 20251217
  Receipt Date: 20251217
  Transmission Date: 20260117
  Serious: Yes (Hospitalization)
  Sender: ABBVIE
  Company Number: CA-ABBVIE-6591354

PATIENT
  Sex: Female

DRUGS (1)
  1. RINVOQ [Suspect]
     Active Substance: UPADACITINIB
     Indication: Crohn^s disease
     Dosage: TAKE 1 TABLET 45 MG FOR 12 WEEKS THEN DECREASE TO 15MILLIGRAM ONCE DAILY?FORM STRENGTH: 45MILLIGRAM
     Route: 048

REACTIONS (2)
  - Abscess [Unknown]
  - Product lot number issue [Unknown]
